FAERS Safety Report 6491905-9 (Version None)
Quarter: 2009Q4

REPORT INFORMATION
  Report Type: 
  Country: None (occurrence: None)
  Receive Date: 20091125
  Receipt Date: 20090819
  Transmission Date: 20100525
  Serious: No
  Sender: FDA-Public Use
  Company Number: 2009BH012967

PATIENT
  Age: 48 Year
  Sex: Female

DRUGS (11)
  1. DIANEAL [Suspect]
     Indication: PERITONEAL DIALYSIS
     Dosage: 8 L ; EVERY DAY ; IP
     Route: 033
     Dates: start: 20060101
  2. COENZYME Q10 [Concomitant]
  3. FLAXSEED OIL [Concomitant]
  4. HECTOROL [Concomitant]
  5. VITAMIN B6 [Concomitant]
  6. MULTI-VITAMINS [Concomitant]
  7. ATORVASTATIN [Concomitant]
  8. MAGNESIUM [Concomitant]
  9. SEVELAMER [Concomitant]
  10. SENSIPAR [Concomitant]
  11. VITAMIN E [Concomitant]

REACTIONS (2)
  - PERITONEAL DIALYSIS COMPLICATION [None]
  - PERITONITIS BACTERIAL [None]
